FAERS Safety Report 7555184-3 (Version None)
Quarter: 2011Q2

REPORT INFORMATION
  Report Type: 
  Country: None (occurrence: None)
  Receive Date: 20110617
  Receipt Date: 20110607
  Transmission Date: 20111010
  Serious: Yes (Hospitalization)
  Sender: FDA-Public Use
  Company Number: PHHY2011GR49597

PATIENT
  Age: 43 Year
  Sex: Male

DRUGS (1)
  1. EXTAVIA [Suspect]
     Dosage: UNK UKN, UNK

REACTIONS (2)
  - VOMITING [None]
  - DIZZINESS [None]
